FAERS Safety Report 21158979 (Version 1)
Quarter: 2022Q3

REPORT INFORMATION
  Report Type: Spontaneous
  Country: US (occurrence: US)
  Receive Date: 20220802
  Receipt Date: 20220802
  Transmission Date: 20221026
  Serious: No
  Sender: FDA-Public Use
  Company Number: US-PRINSTON PHARMACEUTICAL INC.-2022PRN00213

PATIENT
  Age: 75 Year
  Sex: Female
  Weight: 72.562 kg

DRUGS (4)
  1. LISINOPRIL [Suspect]
     Active Substance: LISINOPRIL
     Indication: Hypertension
     Dosage: 10 MG, DAILY
     Route: 048
     Dates: start: 20220611, end: 20220612
  2. ATORVASTATIN [Concomitant]
     Active Substance: ATORVASTATIN
     Dosage: ^LOW DOSE^
  3. METFORMIN [Concomitant]
     Active Substance: METFORMIN HYDROCHLORIDE
  4. ASPIRIN [Concomitant]
     Active Substance: ASPIRIN
     Dosage: UNK, EVERY OTHER DAY

REACTIONS (4)
  - Nausea [Recovered/Resolved]
  - Product taste abnormal [Recovered/Resolved]
  - Product after taste [Recovered/Resolved]
  - Product substitution issue [Recovered/Resolved]

NARRATIVE: CASE EVENT DATE: 20220611
